FAERS Safety Report 11555698 (Version 1)
Quarter: 2015Q3

REPORT INFORMATION
  Report Type: Spontaneous
  Country: KR (occurrence: KR)
  Receive Date: 20150925
  Receipt Date: 20150925
  Transmission Date: 20151125
  Serious: Yes (Hospitalization)
  Sender: FDA-Public Use
  Company Number: KR-AMGEN-KORCT2015099683

PATIENT
  Age: 29 Year
  Sex: Male
  Weight: 72.1 kg

DRUGS (42)
  1. ETOPOSIDE. [Concomitant]
     Active Substance: ETOPOSIDE
     Dosage: 185 MG, UNK
     Route: 042
     Dates: start: 20150727, end: 20150731
  2. MACPERAN [Concomitant]
     Dosage: 15 MG, UNK
     Route: 048
     Dates: start: 20150711, end: 20150715
  3. CORTISOLU [Concomitant]
     Dosage: 100 MG, UNK
     Route: 042
     Dates: start: 20150803, end: 20150803
  4. CORTISOLU [Concomitant]
     Dosage: 100 MG, UNK
     Route: 042
     Dates: start: 20150727, end: 20150727
  5. ZOFRAN [Concomitant]
     Active Substance: ONDANSETRON HYDROCHLORIDE
     Dosage: UNK
     Dates: start: 20150821, end: 20150821
  6. CISPLATIN. [Concomitant]
     Active Substance: CISPLATIN
     Dosage: 37 MG, UNK
     Route: 042
     Dates: start: 20150706, end: 20150710
  7. ETOPOSIDE. [Concomitant]
     Active Substance: ETOPOSIDE
     Dosage: 185 MG, UNK
     Route: 042
     Dates: start: 20150817, end: 20150821
  8. BLEOMYCIN [Concomitant]
     Active Substance: BLEOMYCIN SULFATE
     Dosage: 30 MG, UNK
     Route: 042
     Dates: start: 20150713, end: 20150713
  9. BLEOMYCIN [Concomitant]
     Active Substance: BLEOMYCIN SULFATE
     Dosage: 30 MG, UNK
     Route: 042
     Dates: start: 20150720, end: 20150720
  10. BLEOMYCIN [Concomitant]
     Active Substance: BLEOMYCIN SULFATE
     Dosage: 30 MG, UNK
     Route: 042
     Dates: start: 20150817, end: 20150817
  11. DEXAMETHASONE. [Concomitant]
     Active Substance: DEXAMETHASONE
     Dosage: 10 MG, UNK
     Route: 042
     Dates: start: 20150728, end: 20150730
  12. DEXAMETHASONE. [Concomitant]
     Active Substance: DEXAMETHASONE
     Dosage: 8 MG, UNK
     Route: 042
     Dates: start: 20150818, end: 20150820
  13. NASEA [Concomitant]
     Active Substance: RAMOSETRON HYDROCHLORIDE
     Dosage: 0.3 MG, UNK
     Route: 042
     Dates: start: 20150803, end: 20150803
  14. G-LASTA [Suspect]
     Active Substance: PEGFILGRASTIM
     Dosage: 6 MG, Q3WK
     Route: 058
     Dates: start: 20150822
  15. DIAZEPAM. [Concomitant]
     Active Substance: DIAZEPAM
     Dosage: 5 MG, UNK
     Route: 042
     Dates: start: 20150803, end: 20150803
  16. ANAPROX [Concomitant]
     Active Substance: NAPROXEN SODIUM
     Dosage: 275 MG, UNK
     Route: 048
     Dates: start: 20150803, end: 20150812
  17. EMEND [Concomitant]
     Active Substance: APREPITANT
     Dosage: 125 MG, UNK
     Route: 048
     Dates: start: 20150817, end: 20150817
  18. DEXAMETHASONE. [Concomitant]
     Active Substance: DEXAMETHASONE
     Dosage: 10 MG, UNK
     Route: 042
     Dates: start: 20150817, end: 20150817
  19. ETOPOSIDE. [Concomitant]
     Active Substance: ETOPOSIDE
     Dosage: 185 MG, UNK
     Route: 042
     Dates: start: 20150706, end: 20150710
  20. BLEOMYCIN [Concomitant]
     Active Substance: BLEOMYCIN SULFATE
     Dosage: 30 MG, UNK
     Route: 042
     Dates: start: 20150706, end: 20150710
  21. BLEOMYCIN [Concomitant]
     Active Substance: BLEOMYCIN SULFATE
     Dosage: 30 MG, UNK
     Route: 042
     Dates: start: 20150810, end: 20150810
  22. CEFOLATAM [Concomitant]
     Active Substance: CEFOPERAZONE SODIUM\SULBACTAM SODIUM
     Dosage: 1 G, UNK
     Route: 042
     Dates: start: 20150714, end: 20150714
  23. G-LASTA [Suspect]
     Active Substance: PEGFILGRASTIM
     Indication: FEBRILE NEUTROPENIA
     Dosage: 6 MG, Q3WK
     Route: 058
     Dates: start: 20150711
  24. DENOGAN [Concomitant]
     Dosage: 1 G, UNK
     Route: 042
     Dates: start: 20150713, end: 20150713
  25. TABAXIN [Concomitant]
     Dosage: 4.5 G, UNK
     Route: 042
     Dates: start: 20150714, end: 20150714
  26. EMEND [Concomitant]
     Active Substance: APREPITANT
     Dosage: 80 MG, UNK
     Route: 048
     Dates: start: 20150818, end: 20150819
  27. DEXAMETHASONE. [Concomitant]
     Active Substance: DEXAMETHASONE
     Dosage: 10 MG, UNK
     Route: 042
     Dates: start: 20150803, end: 20150803
  28. NASEA [Concomitant]
     Active Substance: RAMOSETRON HYDROCHLORIDE
     Dosage: 0.3 MG, UNK
     Route: 042
     Dates: start: 20150817, end: 20150817
  29. CORTISOLU [Concomitant]
     Dosage: 100 MG, UNK
     Route: 042
     Dates: start: 20150810, end: 20150810
  30. CORTISOLU [Concomitant]
     Dosage: 100 MG, UNK
     Route: 042
     Dates: start: 20150817, end: 20150817
  31. G-LASTA [Suspect]
     Active Substance: PEGFILGRASTIM
     Dosage: 6 MG, Q3WK
     Route: 058
     Dates: start: 20150801
  32. CISPLATIN. [Concomitant]
     Active Substance: CISPLATIN
     Dosage: 37 MG, UNK
     Route: 042
     Dates: start: 20150817, end: 20150821
  33. BLEOMYCIN [Concomitant]
     Active Substance: BLEOMYCIN SULFATE
     Dosage: 30 MG, UNK
     Route: 042
     Dates: start: 20150803, end: 20150803
  34. MACPERAN [Concomitant]
     Dosage: 30 MG, UNK
     Route: 042
     Dates: start: 20150708, end: 20150710
  35. SODIUM BICARBONATE. [Concomitant]
     Active Substance: SODIUM BICARBONATE
     Dosage: 40 MG, UNK
     Route: 042
     Dates: start: 20150714, end: 20150714
  36. ZOFRAN [Concomitant]
     Active Substance: ONDANSETRON HYDROCHLORIDE
     Dosage: 4 MG, UNK
     Route: 042
     Dates: start: 20150819, end: 20150821
  37. ALOXI [Concomitant]
     Active Substance: PALONOSETRON HYDROCHLORIDE
     Dosage: 0.25 MG, UNK
     Route: 042
     Dates: start: 20150727, end: 20150727
  38. CISPLATIN. [Concomitant]
     Active Substance: CISPLATIN
     Dosage: 37 MG, UNK
     Route: 042
     Dates: start: 20150727, end: 20150731
  39. BLEOMYCIN [Concomitant]
     Active Substance: BLEOMYCIN SULFATE
     Dosage: 30 MG, UNK
     Route: 042
     Dates: start: 20150727, end: 20150727
  40. ANAPROX [Concomitant]
     Active Substance: NAPROXEN SODIUM
     Dosage: 275 MG, UNK
     Route: 048
     Dates: start: 20150720, end: 20150721
  41. DEXAMETHASONE. [Concomitant]
     Active Substance: DEXAMETHASONE
     Dosage: 10 MG, UNK
     Route: 042
     Dates: start: 20150810, end: 20150810
  42. LASIX [Concomitant]
     Active Substance: FUROSEMIDE
     Dosage: 20 MG, UNK
     Route: 042
     Dates: start: 20150820, end: 20150820

REACTIONS (1)
  - Colitis [Recovered/Resolved]

NARRATIVE: CASE EVENT DATE: 20150822
